FAERS Safety Report 6019657-7 (Version None)
Quarter: 2008Q4

REPORT INFORMATION
  Report Type: 
  Country: None (occurrence: None)
  Receive Date: 20081223
  Receipt Date: 20080220
  Transmission Date: 20090506
  Serious: Yes (Other)
  Sender: FDA-Public Use
  Company Number: US-WYE-H02751208

PATIENT
  Age: 66 Year
  Sex: Female
  Weight: 70.82 kg

DRUGS (3)
  1. PRIMATENE MIST [Suspect]
     Indication: ASTHMA
     Dosage: ONE INHALATION, ONE TIME, INHALATION
     Route: 055
     Dates: start: 20080218, end: 20080218
  2. LISINOPRIL [Concomitant]
  3. SINGULAIR [Concomitant]

REACTIONS (1)
  - GLOSSODYNIA [None]
